FAERS Safety Report 20915392 (Version 5)
Quarter: 2023Q2

REPORT INFORMATION
  Report Type: Spontaneous
  Country: US (occurrence: US)
  Receive Date: 20220604
  Receipt Date: 20230612
  Transmission Date: 20230721
  Serious: No
  Sender: FDA-Public Use
  Company Number: US-SA-SAC20220527000116

PATIENT
  Age: 72 Year
  Sex: Female

DRUGS (1)
  1. DUPIXENT [Suspect]
     Active Substance: DUPILUMAB
     Indication: Dermatitis atopic
     Dosage: 300 MG, QOW
     Route: 058
     Dates: start: 201811

REACTIONS (10)
  - Urinary tract infection [Unknown]
  - Cystitis [Unknown]
  - Skin disorder [Unknown]
  - Condition aggravated [Unknown]
  - Fall [Unknown]
  - Head injury [Unknown]
  - Face injury [Unknown]
  - Eye contusion [Unknown]
  - Contusion [Unknown]
  - Therapeutic product effect decreased [Unknown]

NARRATIVE: CASE EVENT DATE: 20220520
